FAERS Safety Report 14634437 (Version 1)
Quarter: 2018Q1

REPORT INFORMATION
  Report Type: Spontaneous
  Country: US (occurrence: US)
  Receive Date: 20180313
  Receipt Date: 20180313
  Transmission Date: 20180509
  Serious: No
  Sender: FDA-Public Use
  Company Number: None

PATIENT
  Age: 69 Year
  Sex: Male

DRUGS (1)
  1. DAPTOMYCIN 600 MG OTHER [Suspect]
     Active Substance: DAPTOMYCIN
     Indication: SEPSIS
     Dosage: Q24H
     Route: 042
     Dates: start: 20180301, end: 20180302

REACTIONS (2)
  - Tremor [None]
  - Pyrexia [None]

NARRATIVE: CASE EVENT DATE: 20180301
